FAERS Safety Report 8824080 (Version 1)
Quarter: 2012Q4

REPORT INFORMATION
  Report Type: 
  Country: US (occurrence: US)
  Receive Date: 20121003
  Receipt Date: 20121003
  Transmission Date: 20130627
  Serious: Yes (Other)
  Sender: FDA-Public Use
  Company Number: US-009507513-1210USA000791

PATIENT
  Sex: Female

DRUGS (22)
  1. JANUMET [Suspect]
     Dosage: 500/50 mg, qd
  2. ZANAFLEX [Suspect]
     Dosage: 2 mg, bid
     Route: 048
  3. GABAPENTIN [Suspect]
     Dosage: 2 DF, tid
     Route: 048
  4. VICODIN [Suspect]
     Dosage: 7.5 mg/325 mg, q4h
     Route: 048
  5. VALSARTAN [Suspect]
     Dosage: 160 mg, qd
     Route: 048
  6. BUPROPION HYDROCHLORIDE [Suspect]
     Dosage: 300 mg, qd
     Route: 048
  7. LOZOL [Suspect]
     Dosage: 1.25 mg, qd
     Route: 048
  8. METFORMIN [Suspect]
     Dosage: 500 mg, qd
     Route: 048
  9. KLONOPIN [Suspect]
     Dosage: 0.5 mg, bid
     Route: 048
  10. PRILOSEC [Suspect]
     Dosage: 20 mg, bid
     Route: 048
  11. CARAFATE [Suspect]
     Dosage: 1 g, bid
     Route: 048
  12. AGGRENOX [Suspect]
     Dosage: UNK, bid
     Route: 048
  13. FLONASE [Suspect]
     Dosage: 4 DF, qd
     Route: 045
  14. FLOVENT [Suspect]
     Dosage: 2 DF, bid
     Route: 055
  15. VENTOLIN (ALBUTEROL) [Suspect]
     Dosage: 2 DF, q2h
     Route: 055
  16. IMITREX [Suspect]
     Dosage: 100 mg, prn
     Route: 048
  17. NITROLINGUAL [Suspect]
     Dosage: 1 DF, prn
  18. EPIPEN [Suspect]
     Route: 030
  19. LORTAB [Suspect]
     Dosage: UNK DF, UNK
     Route: 048
  20. ZOCOR [Suspect]
     Dosage: UNK DF, UNK
     Route: 048
  21. VITAMINS (UNSPECIFIED) [Suspect]
     Dosage: UNK DF, UNK
     Route: 048
  22. ZYRTEC [Suspect]
     Dosage: 10 mg, qd
     Route: 048

REACTIONS (15)
  - Memory impairment [Unknown]
  - Depression [Unknown]
  - Diabetic neuropathy [Unknown]
  - Asthma [Unknown]
  - Migraine [Unknown]
  - Chest pain [Unknown]
  - Multiple allergies [Unknown]
  - Arthralgia [Unknown]
  - Panic attack [Unknown]
  - Fibromyalgia [Unknown]
  - Anxiety [Unknown]
  - Arterial disorder [Unknown]
  - Muscle spasms [Unknown]
  - Cardiac disorder [Unknown]
  - Gastrooesophageal reflux disease [Unknown]
